FAERS Safety Report 13175975 (Version 1)
Quarter: 2017Q1

REPORT INFORMATION
  Report Type: Spontaneous
  Country: US (occurrence: US)
  Receive Date: 20170201
  Receipt Date: 20170201
  Transmission Date: 20170428
  Serious: Yes (Other)
  Sender: FDA-Public Use
  Company Number: US-ELI_LILLY_AND_COMPANY-US201607007733

PATIENT
  Sex: Female

DRUGS (3)
  1. CYMBALTA [Suspect]
     Active Substance: DULOXETINE HYDROCHLORIDE
     Dosage: 60 MG, QD
     Route: 048
  2. CYMBALTA [Suspect]
     Active Substance: DULOXETINE HYDROCHLORIDE
     Dosage: 30 MG, QD
     Route: 048
  3. CYMBALTA [Suspect]
     Active Substance: DULOXETINE HYDROCHLORIDE
     Indication: PRODUCT USED FOR UNKNOWN INDICATION
     Dosage: 90 MG, BID
     Route: 048

REACTIONS (11)
  - Seizure [Unknown]
  - Drug withdrawal syndrome [Unknown]
  - Contusion [Unknown]
  - Fatigue [Unknown]
  - Tremor [Unknown]
  - Lethargy [Unknown]
  - Muscle spasms [Unknown]
  - Crying [Unknown]
  - Dysphoria [Unknown]
  - Affect lability [Unknown]
  - Myalgia [Unknown]
